FAERS Safety Report 13838350 (Version 4)
Quarter: 2018Q1

REPORT INFORMATION
  Report Type: Spontaneous
  Country: PT (occurrence: PT)
  Receive Date: 20170807
  Receipt Date: 20180310
  Transmission Date: 20180508
  Serious: Yes (Hospitalization)
  Sender: FDA-Public Use
  Company Number: PT-ROCHE-1973419

PATIENT
  Age: 75 Year
  Sex: Female

DRUGS (1)
  1. OMALIZUMAB. [Suspect]
     Active Substance: OMALIZUMAB
     Indication: CHRONIC SPONTANEOUS URTICARIA
     Route: 065

REACTIONS (7)
  - Cardiac ventricular disorder [Unknown]
  - Pain [Unknown]
  - Lung disorder [Unknown]
  - Cardiac disorder [Recovering/Resolving]
  - Stress cardiomyopathy [Unknown]
  - Troponin increased [Unknown]
  - Chest pain [Unknown]
